FAERS Safety Report 17288259 (Version 2)
Quarter: 2020Q2

REPORT INFORMATION
  Report Type: Spontaneous
  Country: US (occurrence: US)
  Receive Date: 20200120
  Receipt Date: 20200506
  Transmission Date: 20200713
  Serious: Yes (Hospitalization, Other)
  Sender: FDA-Public Use
  Company Number: US-009507513-2001USA005663

PATIENT
  Age: 69 Year
  Sex: Female

DRUGS (9)
  1. CITALOPRAM [Concomitant]
     Active Substance: CITALOPRAM HYDROBROMIDE
     Dosage: UNK
  2. TICE BCG [Suspect]
     Active Substance: BACILLUS CALMETTE-GUERIN SUBSTRAIN TICE LIVE ANTIGEN
     Dosage: SIX MAINTENANCE DOSES, WEEKLY
     Route: 043
     Dates: start: 20181204
  3. DIAZEPAM. [Concomitant]
     Active Substance: DIAZEPAM
     Dosage: UNK
  4. TICE BCG [Suspect]
     Active Substance: BACILLUS CALMETTE-GUERIN SUBSTRAIN TICE LIVE ANTIGEN
     Dosage: SIX MAINTENANCE DOSES, WEEKLY
     Route: 043
     Dates: start: 20170817
  5. TICE BCG [Suspect]
     Active Substance: BACILLUS CALMETTE-GUERIN SUBSTRAIN TICE LIVE ANTIGEN
     Indication: URETERIC CANCER
     Dosage: ONE DOSE WEEKLY FOR SIX WEEKS
     Route: 043
     Dates: start: 20160906, end: 20161018
  6. CLONIDINE. [Concomitant]
     Active Substance: CLONIDINE
     Dosage: UNK
  7. SYNTHROID [Concomitant]
     Active Substance: LEVOTHYROXINE SODIUM
     Dosage: UNK
  8. ATORVASTATIN [Concomitant]
     Active Substance: ATORVASTATIN
     Dosage: UNK
  9. NORTRIPTYLINE [Concomitant]
     Active Substance: NORTRIPTYLINE
     Dosage: UNK

REACTIONS (5)
  - Nephrectomy [Not Recovered/Not Resolved]
  - Bladder disorder [Not Recovered/Not Resolved]
  - Product use in unapproved indication [Unknown]
  - Ureteric cancer recurrent [Not Recovered/Not Resolved]
  - Ureteric operation [Not Recovered/Not Resolved]

NARRATIVE: CASE EVENT DATE: 20160906
